FAERS Safety Report 9886017 (Version 1)
Quarter: 2014Q1

REPORT INFORMATION
  Report Type: Spontaneous
  Country: PL (occurrence: PL)
  Receive Date: 20140210
  Receipt Date: 20140210
  Transmission Date: 20141002
  Serious: Yes (Hospitalization)
  Sender: FDA-Public Use
  Company Number: PL-GLAXOSMITHKLINE-B0967552A

PATIENT
  Age: 19 Year
  Sex: Male
  Weight: 76 kg

DRUGS (1)
  1. ONDANSETRON [Suspect]
     Indication: SURGERY
     Dosage: 16MG PER DAY
     Route: 042
     Dates: start: 20131018, end: 20131018

REACTIONS (8)
  - Anxiety [Recovered/Resolved]
  - Tachycardia [Recovered/Resolved]
  - Dyspnoea [Recovered/Resolved]
  - Skin burning sensation [Recovered/Resolved]
  - Eyelid oedema [Recovered/Resolved]
  - Rhinorrhoea [Recovered/Resolved]
  - Erythema [Recovered/Resolved]
  - Erythema [Recovered/Resolved]
